FAERS Safety Report 6687194-2 (Version None)
Quarter: 2010Q2

REPORT INFORMATION
  Report Type: 
  Country: None (occurrence: None)
  Receive Date: 20100419
  Receipt Date: 20100322
  Transmission Date: 20101027
  Serious: Yes (Hospitalization, Other)
  Sender: FDA-Public Use
  Company Number: US-PFIZER INC-2010036811

PATIENT
  Sex: Female
  Weight: 104 kg

DRUGS (5)
  1. ZOLOFT [Suspect]
     Indication: DEPRESSION
     Dosage: 200 MG DAILY
     Route: 048
     Dates: start: 20001201
  2. GEODON [Suspect]
     Indication: DEPRESSION
     Dosage: 80 MG DAILY
     Route: 048
     Dates: start: 20001201
  3. CHANTIX [Suspect]
     Dosage: UNK
     Route: 048
     Dates: start: 20071101, end: 20071101
  4. KLONOPIN [Concomitant]
     Indication: ANXIETY
     Dosage: 4 MG DAILY
     Route: 048
  5. LISINOPRIL [Concomitant]
     Indication: BLOOD PRESSURE
     Dosage: UNK
     Route: 048

REACTIONS (3)
  - CARDIAC DISORDER [None]
  - CARDIAC ENZYMES INCREASED [None]
  - SUICIDE ATTEMPT [None]
